FAERS Safety Report 15582561 (Version 1)
Quarter: 2018Q4

REPORT INFORMATION
  Report Type: Spontaneous
  Country: GB (occurrence: GB)
  Receive Date: 20181103
  Receipt Date: 20181103
  Transmission Date: 20190205
  Serious: Yes (Disabling)
  Sender: FDA-Public Use
  Company Number: GB-ACCORD-090705

PATIENT
  Age: 78 Year
  Sex: Male
  Weight: 67 kg

DRUGS (14)
  1. FELODIPINE. [Concomitant]
     Active Substance: FELODIPINE
     Dates: start: 20171110
  2. CLENIL MODULITE [Concomitant]
     Active Substance: BECLOMETHASONE DIPROPIONATE
     Dates: start: 20150127
  3. FLUCLOXACILLIN [Concomitant]
     Active Substance: FLUCLOXACILLIN
     Dates: start: 20171128, end: 20171205
  4. ACETYLSALICYLIC ACID [Concomitant]
     Active Substance: ASPIRIN
     Dates: start: 20150127
  5. LANSOPRAZOLE. [Concomitant]
     Active Substance: LANSOPRAZOLE
     Dates: start: 20150127
  6. DIPYRIDAMOLE. [Concomitant]
     Active Substance: DIPYRIDAMOLE
     Dates: start: 20171106, end: 20171206
  7. IRBESARTAN. [Concomitant]
     Active Substance: IRBESARTAN
     Dates: start: 20150127
  8. SALBUTAMOL [Concomitant]
     Active Substance: ALBUTEROL
     Dosage: UP TO FOUR TIMES A DAY
     Route: 055
     Dates: start: 20150127
  9. ATORVASTATIN [Concomitant]
     Active Substance: ATORVASTATIN
     Dates: start: 20151214
  10. DEPO-MEDRONE [Concomitant]
     Active Substance: METHYLPREDNISOLONE
     Dates: start: 20171211, end: 20171212
  11. GLYCERYL TRINITRATE [Concomitant]
     Active Substance: NITROGLYCERIN
     Indication: ANGINA PECTORIS
     Route: 060
     Dates: start: 20170116
  12. CLOPIDOGREL [Suspect]
     Active Substance: CLOPIDOGREL BISULFATE
     Indication: PRODUCT USED FOR UNKNOWN INDICATION
     Dates: start: 20171107
  13. LIDOCAINE. [Concomitant]
     Active Substance: LIDOCAINE
     Dates: start: 20171211, end: 20171212
  14. KETOCONAZOLE. [Concomitant]
     Active Substance: KETOCONAZOLE
     Dosage: APPLY TO THE AFFECTED AREA(S) ONCE OR TWICE A DAY
     Dates: start: 20171023, end: 20171102

REACTIONS (2)
  - Confusional state [Recovered/Resolved]
  - Hallucination, visual [Recovered/Resolved]

NARRATIVE: CASE EVENT DATE: 20171110
